FAERS Safety Report 17170211 (Version 1)
Quarter: 2019Q4

REPORT INFORMATION
  Report Type: Spontaneous
  Country: US (occurrence: US)
  Receive Date: 20191218
  Receipt Date: 20191218
  Transmission Date: 20200122
  Serious: Yes (Other)
  Sender: FDA-Public Use
  Company Number: US-PFIZER INC-2019542440

PATIENT
  Age: 61 Year
  Sex: Male

DRUGS (2)
  1. CHANTIX [Suspect]
     Active Substance: VARENICLINE TARTRATE
     Dosage: 1 MG, UNK [(0.5 MG (11) - 1 MG (42)) 1 BOX ORAL TAKE AS DIRECTED]
     Route: 048
  2. CHANTIX [Suspect]
     Active Substance: VARENICLINE TARTRATE
     Dosage: 0.5 MG, UNK [(0.5 MG (11) - 1 MG (42)) 1 BOX ORAL TAKE AS DIRECTED]
     Route: 048

REACTIONS (3)
  - Impaired work ability [Unknown]
  - Arthritis [Unknown]
  - Lung neoplasm malignant [Unknown]
